FAERS Safety Report 5131594-9 (Version None)
Quarter: 2006Q4

REPORT INFORMATION
  Report Type: 
  Country: None (occurrence: None)
  Receive Date: 20061020
  Receipt Date: 20061010
  Transmission Date: 20070319
  Serious: Yes (Other)
  Sender: FDA-Public Use
  Company Number: PHFR2006CY03039

PATIENT
  Age: 67 Year
  Sex: Female

DRUGS (2)
  1. ZOMETA [Suspect]
     Indication: METASTASES TO BONE
     Dosage: 4 MG, QMO
     Route: 042
     Dates: start: 20060201, end: 20060901
  2. FEMARA [Concomitant]
     Dosage: 2.5 MG/DAY

REACTIONS (3)
  - JAW CYST [None]
  - OSTEONECROSIS [None]
  - TOOTHACHE [None]
